FAERS Safety Report 9039730 (Version 1)
Quarter: 2013Q1

REPORT INFORMATION
  Report Type: Report from Study
  Country: US (occurrence: US)
  Receive Date: 20130130
  Receipt Date: 20130130
  Transmission Date: 20140127
  Serious: No
  Sender: FDA-Public Use
  Company Number: US-ABBOTT-12P-163-0916258-00

PATIENT
  Age: 12 Year
  Sex: Female
  Weight: 25.8 kg

DRUGS (7)
  1. HUMIRA 40 MG/0.8 ML PEN [Suspect]
     Indication: COLITIS ULCERATIVE
     Route: 058
     Dates: start: 20120305, end: 20120305
  2. HUMIRA 40 MG/0.8 ML PEN [Suspect]
     Route: 050
     Dates: start: 20120315, end: 20120315
  3. HUMIRA 40 MG/0.8 ML PEN [Suspect]
     Route: 058
  4. RISPERIDONE [Concomitant]
     Indication: PRODUCT USED FOR UNKNOWN INDICATION
     Dosage: DAILY
     Route: 048
  5. ZYRTEC [Concomitant]
     Indication: PRODUCT USED FOR UNKNOWN INDICATION
     Dosage: DAILY
     Route: 048
  6. PENTASA [Concomitant]
     Indication: PRODUCT USED FOR UNKNOWN INDICATION
     Dosage: DAILY
     Route: 048
  7. PREDNISONE [Concomitant]

REACTIONS (4)
  - Increased tendency to bruise [Recovered/Resolved]
  - Impaired healing [Recovered/Resolved]
  - Vessel puncture site bruise [Recovered/Resolved]
  - Injection site bruising [Recovered/Resolved]
